FAERS Safety Report 25927975 (Version 3)
Quarter: 2025Q4

REPORT INFORMATION
  Report Type: Report from Study
  Country: US (occurrence: US)
  Receive Date: 20251016
  Receipt Date: 20251124
  Transmission Date: 20260117
  Serious: Yes (Other)
  Sender: TAKEDA
  Company Number: US-TAKEDA-2025TUS089801

PATIENT
  Age: 22 Year
  Sex: Male
  Weight: 91 kg

DRUGS (7)
  1. VEDOLIZUMAB [Suspect]
     Active Substance: VEDOLIZUMAB
     Indication: Crohn^s disease
     Dosage: 108 MILLIGRAM, Q2WEEKS
     Dates: start: 20250527
  2. VEDOLIZUMAB [Suspect]
     Active Substance: VEDOLIZUMAB
  3. OMEPRAZOLE [Concomitant]
     Active Substance: OMEPRAZOLE
     Dosage: UNK
  4. BREO ELLIPTA [Concomitant]
     Active Substance: FLUTICASONE FUROATE\VILANTEROL TRIFENATATE
     Indication: Asthma
     Dosage: 200-20 MICROGRAM, QD
  5. CLARITIN [Concomitant]
     Active Substance: LORATADINE
     Indication: Multiple allergies
     Dosage: 10 MILLIGRAM, QD
  6. DICYCLOMINE [Concomitant]
     Active Substance: DICYCLOMINE HYDROCHLORIDE
     Indication: Abdominal pain
     Dosage: 20 MILLIGRAM, QD
  7. ESOMEPRAZOLE [Concomitant]
     Active Substance: ESOMEPRAZOLE
     Indication: Eosinophilic oesophagitis
     Dosage: 40 MILLIGRAM, BID
     Dates: start: 20240111

REACTIONS (3)
  - Crohn^s disease [Recovered/Resolved with Sequelae]
  - Device defective [Recovered/Resolved]
  - Erythema [Unknown]

NARRATIVE: CASE EVENT DATE: 20251010
